FAERS Safety Report 15566487 (Version 1)
Quarter: 2018Q4

REPORT INFORMATION
  Report Type: Spontaneous
  Country: US (occurrence: US)
  Receive Date: 20181030
  Receipt Date: 20181030
  Transmission Date: 20190205
  Serious: Yes (Hospitalization, Other)
  Sender: FDA-Public Use
  Company Number: US-TEVA-2018-US-969301

PATIENT
  Age: 44 Year
  Sex: Male

DRUGS (4)
  1. PREDNISONE. [Suspect]
     Active Substance: PREDNISONE
     Indication: IMMUNOSUPPRESSANT DRUG THERAPY
     Dosage: 40 MILLIGRAM DAILY; 40 TO 60 MG DAILY
     Route: 065
  2. PREDNISONE. [Suspect]
     Active Substance: PREDNISONE
     Dosage: 60 MILLIGRAM DAILY;
     Route: 065
  3. MYCOPHENOLATE MOFETIL. [Suspect]
     Active Substance: MYCOPHENOLATE MOFETIL
     Dosage: 3000 MILLIGRAM DAILY; TITRATED DOSE
     Route: 065
  4. MYCOPHENOLATE MOFETIL. [Suspect]
     Active Substance: MYCOPHENOLATE MOFETIL
     Indication: IMMUNOSUPPRESSANT DRUG THERAPY
     Dosage: INITIAL DOSE UNKNOWN
     Route: 065

REACTIONS (10)
  - Pneumonia [Unknown]
  - Osteoporosis [Unknown]
  - Weight increased [Unknown]
  - Depression [Unknown]
  - Oesophageal candidiasis [Unknown]
  - Spinal fracture [Unknown]
  - Sepsis [Unknown]
  - Compression fracture [Unknown]
  - Cellulitis [Unknown]
  - Cataract [Recovered/Resolved]
